FAERS Safety Report 10846526 (Version 1)
Quarter: 2015Q1

REPORT INFORMATION
  Report Type: Report from Study
  Country: NL (occurrence: NL)
  Receive Date: 20150220
  Receipt Date: 20150220
  Transmission Date: 20150721
  Serious: Yes (Hospitalization)
  Sender: FDA-Public Use
  Company Number: NL-TEVA-541462ISR

PATIENT
  Age: 37 Year
  Sex: Female

DRUGS (8)
  1. OXYCODON HCL LANNACHER [Concomitant]
     Dosage: 20 MILLIGRAM DAILY;
  2. OXYCODON 5 MG [Concomitant]
     Dosage: 15 MILLIGRAM DAILY;
  3. PARACETAMOL 500 MG [Concomitant]
     Dosage: 6000 MILLIGRAM DAILY;
  4. MOVICOLON 13.5 G [Concomitant]
  5. AMITRIPTYLINE 25 MG [Concomitant]
     Active Substance: AMITRIPTYLINE
     Dosage: 75 MILLIGRAM DAILY;
  6. DICLOFENAC 100 MGR [Concomitant]
     Dosage: MAX 3 TIMES PER DAY
  7. GABAPENTINE [Concomitant]
     Active Substance: GABAPENTIN
     Dosage: 900 MILLIGRAM DAILY;
  8. COPAXONE [Suspect]
     Active Substance: GLATIRAMER ACETATE
     Indication: MULTIPLE SCLEROSIS
     Dosage: 20 MILLIGRAM/MILLILITERS DAILY;
     Route: 058
     Dates: start: 20130912

REACTIONS (3)
  - Tonsillectomy [Not Recovered/Not Resolved]
  - Haemorrhage [Not Recovered/Not Resolved]
  - Throat irritation [Not Recovered/Not Resolved]

NARRATIVE: CASE EVENT DATE: 20140113
